FAERS Safety Report 4309449-9 (Version None)
Quarter: 2004Q1

REPORT INFORMATION
  Report Type: 
  Country: None (occurrence: None)
  Receive Date: 20040301
  Receipt Date: 20040213
  Transmission Date: 20041129
  Serious: No
  Sender: FDA-Public Use
  Company Number: B0318634B

PATIENT
  Age: 46 Year
  Sex: Female
  Weight: 89.8122 kg

DRUGS (13)
  1. ASPIRIN [Suspect]
     Indication: DEEP VEIN THROMBOSIS
     Dosage: ORAL
     Route: 048
     Dates: start: 20031204
  2. WARFARIN POTASSIUM (WARFARIN POTASSIUM) [Suspect]
     Indication: DEEP VEIN THROMBOSIS
     Dosage: ORAL
     Route: 048
     Dates: start: 20031226, end: 20040104
  3. LOXOPROFEN (LOXOPROFEN) [Suspect]
     Indication: DEEP VEIN THROMBOSIS
     Dosage: ORAL
     Route: 048
     Dates: start: 20031208, end: 20040204
  4. PREDNISOLONE [Concomitant]
  5. NIACINAMIDE [Concomitant]
  6. FAMOTIDINE [Concomitant]
  7. KETOTIFEN FUMARATE [Concomitant]
  8. CETIRIZINE HCL [Concomitant]
  9. ALENDRONATE SODIUM [Concomitant]
  10. CHLORPHENIRAMINE MALEATE [Concomitant]
  11. SERRAPEPTASE [Concomitant]
  12. HUMAN INSULIN [Concomitant]
  13. AZATHIOPRINE [Concomitant]

REACTIONS (2)
  - ANAEMIA [None]
  - GASTRITIS [None]
